FAERS Safety Report 13326631 (Version 1)
Quarter: 2017Q1

REPORT INFORMATION
  Report Type: Report from Study
  Country: US (occurrence: US)
  Receive Date: 20170311
  Receipt Date: 20170311
  Transmission Date: 20170428
  Serious: No
  Sender: FDA-Public Use
  Company Number: US-ALEXZA PHARMACEUTICALS, INC-1064148

PATIENT
  Sex: Male
  Weight: 68 kg

DRUGS (1)
  1. ADASUVE [Suspect]
     Active Substance: LOXAPINE
     Indication: AGITATION
     Route: 055
     Dates: start: 20170223, end: 20170223

REACTIONS (1)
  - Cyanosis [Recovered/Resolved]

NARRATIVE: CASE EVENT DATE: 20170223
